FAERS Safety Report 9887534 (Version 1)
Quarter: 2014Q1

REPORT INFORMATION
  Report Type: Spontaneous
  Country: GB (occurrence: None)
  Receive Date: 20140206
  Receipt Date: 20140206
  Transmission Date: 20141002
  Serious: Yes (Death)
  Sender: FDA-Public Use
  Company Number: 2161301

PATIENT
  Age: 34 Year
  Sex: Female

DRUGS (14)
  1. GENTAMICIN SULFATE [Suspect]
     Indication: PERITONITIS
     Dosage: INTRAPERITIONEAL
     Dates: start: 20131127, end: 20131202
  2. SODIUM LACTATE [Suspect]
     Indication: RENAL FAILURE CHRONIC
     Dosage: 5 1 LITRE (S)
     Dates: start: 20131118, end: 20131128
  3. SODIUM LACTATE [Suspect]
     Indication: PERITONEAL DIALYSIS
     Dosage: 5 1 LITRE (S)
     Dates: start: 20131118, end: 20131128
  4. SODIUM LACTATE [Suspect]
     Indication: PERITONEAL DIALYSIS
     Dosage: 5 1 LITRE (S)
     Dates: start: 20131118, end: 20131128
  5. ICODEXTRIN [Suspect]
     Indication: PERITONEAL DIALYSIS
     Dosage: INTRAPERITONEAL
  6. FOLIC ACID [Concomitant]
  7. CANDESARTAN [Concomitant]
  8. SILDENAFIL [Concomitant]
  9. SODIUM BICARBONATE [Concomitant]
  10. LEVTIRACETAM [Concomitant]
  11. PARACETAMOL [Concomitant]
  12. TRAMADOL [Concomitant]
  13. PENICILLIN [Concomitant]
  14. VANCOMYCIN [Concomitant]

REACTIONS (13)
  - Pseudomonas infection [None]
  - Inadequate aseptic technique in use of product [None]
  - Medical device pain [None]
  - Constipation [None]
  - Urine output increased [None]
  - Vomiting [None]
  - Red blood cell count decreased [None]
  - Drug dose omission [None]
  - Respiratory syncytial virus infection [None]
  - Circulatory collapse [None]
  - Catheter site infection [None]
  - Nephropathy toxic [None]
  - Peritoneal dialysis complication [None]
